FAERS Safety Report 20619925 (Version 1)
Quarter: 2022Q1

REPORT INFORMATION
  Report Type: Spontaneous
  Country: SG (occurrence: SG)
  Receive Date: 20220322
  Receipt Date: 20220322
  Transmission Date: 20220424
  Serious: Yes (Death)
  Sender: FDA-Public Use
  Company Number: SG-ELI_LILLY_AND_COMPANY-SG202203007674

PATIENT
  Sex: Female

DRUGS (2)
  1. TALTZ [Suspect]
     Active Substance: IXEKIZUMAB
     Indication: Product used for unknown indication
     Dosage: UNK, OTHER INDUCTION DOSE
     Route: 065
  2. TALTZ [Suspect]
     Active Substance: IXEKIZUMAB
     Dosage: UNK, MONTHLY (1/M)
     Route: 065

REACTIONS (1)
  - Pneumonia [Fatal]
